FAERS Safety Report 5365128-0 (Version None)
Quarter: 2007Q2

REPORT INFORMATION
  Report Type: 
  Country: None (occurrence: None)
  Receive Date: 20070530
  Receipt Date: 20070113
  Transmission Date: 20071010
  Serious: No
  Sender: FDA-Public Use
  Company Number: 2007PV028417

PATIENT
  Age: 67 Year
  Sex: Male
  Weight: 99.7913 kg

DRUGS (4)
  1. BYETTA [Suspect]
     Indication: DIABETES MELLITUS NON-INSULIN-DEPENDENT
     Dosage: 10 MCG;BID;SC
     Route: 058
     Dates: start: 20061101, end: 20070101
  2. BYETTA [Suspect]
     Indication: DIABETES MELLITUS NON-INSULIN-DEPENDENT
     Dosage: 10 MCG;BID;SC
     Route: 058
     Dates: start: 20070101, end: 20070112
  3. ACTOS [Concomitant]
  4. GLUCOVANCE [Concomitant]

REACTIONS (2)
  - HYPOAESTHESIA [None]
  - MUSCULAR WEAKNESS [None]
